FAERS Safety Report 9530119 (Version 2)
Quarter: 2019Q4

REPORT INFORMATION
  Report Type: Spontaneous
  Country: FR (occurrence: FR)
  Receive Date: 20130917
  Receipt Date: 20191023
  Transmission Date: 20200122
  Serious: Yes (Hospitalization, Other)
  Sender: FDA-Public Use
  Company Number: FR-BAYER-2013-108902

PATIENT
  Age: 83 Year
  Sex: Female

DRUGS (22)
  1. MABTHERA [Suspect]
     Active Substance: RITUXIMAB
     Indication: NON-HODGKIN^S LYMPHOMA
     Dosage: UNK
  2. LASILIX [FUROSEMIDE] [Concomitant]
     Active Substance: FUROSEMIDE
     Indication: PRODUCT USED FOR UNKNOWN INDICATION
     Dosage: UNK
     Route: 065
  3. TAGAMET [Concomitant]
     Active Substance: CIMETIDINE
     Indication: PRODUCT USED FOR UNKNOWN INDICATION
     Dosage: 800 MG, UNK
     Route: 065
  4. MOTILIUM [Suspect]
     Active Substance: DOMPERIDONE
     Indication: PRODUCT USED FOR UNKNOWN INDICATION
     Dosage: 500 MG, QD
     Dates: start: 20130814, end: 20130815
  5. CEFUROXIME. [Suspect]
     Active Substance: CEFUROXIME
     Indication: B-CELL LYMPHOMA
     Dosage: 500 MG
  6. LEVACT [Suspect]
     Active Substance: BENDAMUSTINE HYDROCHLORIDE
     Indication: B-CELL LYMPHOMA
     Dosage: UNK
     Dates: start: 20130703
  7. LEVACT [Suspect]
     Active Substance: BENDAMUSTINE HYDROCHLORIDE
     Indication: NON-HODGKIN^S LYMPHOMA
     Dosage: UNK
     Dates: start: 20130731, end: 20130801
  8. BACTRIM [Suspect]
     Active Substance: SULFAMETHOXAZOLE\TRIMETHOPRIM
     Indication: PRODUCT USED FOR UNKNOWN INDICATION
     Dosage: 3 DF, OW
     Route: 048
     Dates: start: 20130704, end: 20130819
  9. CEFUROXIME. [Suspect]
     Active Substance: CEFUROXIME
     Indication: PYREXIA
     Dosage: 375 MG/M2, UNK
     Route: 042
     Dates: start: 20130703
  10. CEFUROXIME. [Suspect]
     Active Substance: CEFUROXIME
     Indication: NON-HODGKIN^S LYMPHOMA
     Dosage: 500 MG, UNK
     Route: 048
     Dates: start: 20130818, end: 20130819
  11. HYDROXYZINE [Concomitant]
     Active Substance: HYDROXYZINE HYDROCHLORIDE
     Indication: PRODUCT USED FOR UNKNOWN INDICATION
     Dosage: 50 MG, UNK
     Route: 065
  12. CEFUROXIME. [Suspect]
     Active Substance: CEFUROXIME
     Indication: B-CELL LYMPHOMA
     Dosage: 375 MG/M2, UNK
     Route: 042
     Dates: start: 20130731, end: 20130731
  13. CEFUROXIME. [Suspect]
     Active Substance: CEFUROXIME
     Indication: B-CELL LYMPHOMA
     Dosage: 90 MG/M2, UNK
     Route: 042
     Dates: start: 20130703
  14. CEFUROXIME. [Suspect]
     Active Substance: CEFUROXIME
     Indication: B-CELL LYMPHOMA
     Dosage: 90 MG/M2, UNK
     Route: 042
     Dates: start: 20130731, end: 20130801
  15. CEFUROXIME. [Suspect]
     Active Substance: CEFUROXIME
     Indication: B-CELL LYMPHOMA
     Dosage: 3 DF, UNK
     Route: 048
     Dates: start: 20130704, end: 20130819
  16. AERIUS (DESLORATADINE) [Concomitant]
     Active Substance: DESLORATADINE
     Indication: FACE OEDEMA
     Dosage: UNK
     Route: 065
  17. METHYLPREDNISOLONE. [Suspect]
     Active Substance: METHYLPREDNISOLONE
     Indication: B-CELL LYMPHOMA
     Dosage: 40 MG
     Route: 065
  18. BENDAMUSTINE [Suspect]
     Active Substance: BENDAMUSTINE
     Dosage: 6.4286 MG/M2 (90 MG/M2, IN 4 WEEKS)
     Route: 042
     Dates: start: 20130703, end: 20130801
  19. MABTHERA [Suspect]
     Active Substance: RITUXIMAB
     Indication: NON-HODGKIN^S LYMPHOMA
     Dosage: 375 MILLIGRAM/SQ. METER PER DAY
     Route: 042
     Dates: start: 20130703, end: 20130731
  20. CEFUROXIME. [Suspect]
     Active Substance: CEFUROXIME
     Indication: PRODUCT USED FOR UNKNOWN INDICATION
     Dosage: 500 MG, UNK
     Route: 065
     Dates: start: 20130814, end: 20130815
  21. CEFUROXIME. [Suspect]
     Active Substance: CEFUROXIME
     Indication: B-CELL LYMPHOMA
     Dosage: 40 MG, UNK
     Route: 065
  22. CIFLOX 500 MG [Suspect]
     Active Substance: CIPROFLOXACIN
     Indication: PYREXIA
     Dosage: 500 MG, QD
     Route: 048
     Dates: start: 20130818, end: 20130819

REACTIONS (7)
  - Agranulocytosis [Recovered/Resolved]
  - Prescribed underdose [Unknown]
  - Leukopenia [Unknown]
  - Febrile neutropenia [Recovering/Resolving]
  - Toxic skin eruption [Recovered/Resolved]
  - Pancytopenia [Recovering/Resolving]
  - Rash maculo-papular [Unknown]

NARRATIVE: CASE EVENT DATE: 20130703
